FAERS Safety Report 4560828-4 (Version None)
Quarter: 2005Q1

REPORT INFORMATION
  Report Type: 
  Country: None (occurrence: None)
  Receive Date: 20050121
  Receipt Date: 20050112
  Transmission Date: 20050727
  Serious: Yes (Congenital Anomaly, Other)
  Sender: FDA-Public Use
  Company Number: 2005-01-0796

PATIENT

DRUGS (2)
  1. CLARITIN [Suspect]
     Dates: start: 20040101, end: 20040101
  2. CETIRIZINE HCL [Suspect]
     Dates: start: 20040101, end: 20040101

REACTIONS (2)
  - CONGENITAL GENITOURINARY ABNORMALITY [None]
  - DRUG EXPOSURE DURING PREGNANCY [None]
